FAERS Safety Report 7929889-6 (Version None)
Quarter: 2011Q4

REPORT INFORMATION
  Report Type: 
  Country: None (occurrence: None)
  Receive Date: 20111118
  Receipt Date: 20111118
  Transmission Date: 20120403
  Serious: Yes (Hospitalization)
  Sender: FDA-Public Use
  Company Number: None

PATIENT
  Age: 7 Year
  Sex: Male
  Weight: 24.4942 kg

DRUGS (1)
  1. AMITRIPTYLINE HCL [Suspect]
     Indication: ABDOMINAL PAIN
     Dosage: 10 MG, PER DAY, DAILY
     Dates: start: 20110131, end: 20110206

REACTIONS (1)
  - TREMOR [None]
